FAERS Safety Report 4640227-7 (Version None)
Quarter: 2005Q2

REPORT INFORMATION
  Report Type: 
  Country: None (occurrence: None)
  Receive Date: 20050419
  Receipt Date: 20050419
  Transmission Date: 20051028
  Serious: Yes (Death)
  Sender: FDA-Public Use
  Company Number: None

PATIENT
  Age: 30 Year
  Sex: Male
  Weight: 120 kg

DRUGS (3)
  1. OXALIPLATIN [Suspect]
     Indication: MALIGNANT MELANOMA
     Dosage: 85MG/M2, IV, Q3W
     Route: 042
     Dates: start: 20050204
  2. TAXOTERE [Suspect]
     Dosage: 65MG/M2, IV, Q3W
     Route: 042
     Dates: start: 20050203
  3. GM-CSF [Suspect]
     Dosage: 600 MCG SQ  QD  X 10 DAYS (D 3 -} 12)
     Route: 058
     Dates: start: 20050206

REACTIONS (3)
  - BLOOD BILIRUBIN INCREASED [None]
  - MALIGNANT MELANOMA [None]
  - MALIGNANT NEOPLASM PROGRESSION [None]
